FAERS Safety Report 7156200-3 (Version None)
Quarter: 2010Q4

REPORT INFORMATION
  Report Type: 
  Country: None (occurrence: None)
  Receive Date: 20101123
  Receipt Date: 20100820
  Transmission Date: 20110411
  Serious: Yes (Other)
  Sender: FDA-Public Use
  Company Number: 014625

PATIENT
  Sex: Female

DRUGS (3)
  1. CIMZIA [Suspect]
     Indication: CROHN'S DISEASE
     Dosage: (400 MG 1X/MONTH SUBCUTANEOUS) (400 MG 1X/MONTH SUBCUTANEOUS)
     Route: 058
     Dates: start: 20090114
  2. CIMZIA [Suspect]
     Indication: CROHN'S DISEASE
     Dosage: (400 MG 1X/MONTH SUBCUTANEOUS) (400 MG 1X/MONTH SUBCUTANEOUS)
     Route: 058
     Dates: start: 20100812
  3. CIMZIA [Suspect]

REACTIONS (7)
  - ABDOMINAL PAIN [None]
  - ARTHRALGIA [None]
  - INJECTION SITE IRRITATION [None]
  - INSOMNIA [None]
  - INTRA-ABDOMINAL PRESSURE INCREASED [None]
  - NAUSEA [None]
  - PAIN [None]
